FAERS Safety Report 23441553 (Version 17)
Quarter: 2024Q4

REPORT INFORMATION
  Report Type: Spontaneous
  Country: CA (occurrence: CA)
  Receive Date: 20240125
  Receipt Date: 20241009
  Transmission Date: 20250114
  Serious: Yes (Other)
  Sender: CELLTRION
  Company Number: CA-CELLTRION INC.-2024CA001101

PATIENT

DRUGS (23)
  1. INFLECTRA [Suspect]
     Active Substance: INFLIXIMAB-DYYB
     Indication: Crohn^s disease
     Dosage: 500 MG, Q 0, 2, 6 WEEKS, THEN EVERY 8 WEEKS
     Route: 042
     Dates: start: 20200608, end: 20200623
  2. INFLECTRA [Suspect]
     Active Substance: INFLIXIMAB-DYYB
     Indication: Colitis ulcerative
     Dosage: 1000 MG (10 MG/KG) AT 0, 2 AND 6 WEEKS, THEN 5 MG/KG EVERY 8 WEEK
     Route: 042
     Dates: start: 20200717, end: 20210617
  3. INFLECTRA [Suspect]
     Active Substance: INFLIXIMAB-DYYB
     Dosage: 10 MG/KG, EVERY 4 WEEKS
     Route: 042
     Dates: start: 20210715, end: 20230519
  4. INFLECTRA [Suspect]
     Active Substance: INFLIXIMAB-DYYB
     Dosage: 10 MG/KG, EVERY 6 WEEKS
     Route: 042
     Dates: start: 20230630, end: 20230811
  5. INFLECTRA [Suspect]
     Active Substance: INFLIXIMAB-DYYB
     Dosage: 10 MG/KG, STAT DOSE, THEN ONE DOSE IN 2 WEEKS, THEN EVERY 6 WEEKS
     Route: 042
     Dates: start: 20231030
  6. INFLECTRA [Suspect]
     Active Substance: INFLIXIMAB-DYYB
     Dosage: 10 MG/KG, STAT DOSE, THEN ONE DOSE IN 2 WEEKS, THEN EVERY 6 WEEKS
     Route: 042
     Dates: start: 20231114
  7. INFLECTRA [Suspect]
     Active Substance: INFLIXIMAB-DYYB
     Dosage: 10 MG/KG, STAT DOSE, THEN ONE DOSE IN 2 WEEKS, THEN EVERY 6 WEEKS
     Route: 042
     Dates: start: 20231114
  8. INFLECTRA [Suspect]
     Active Substance: INFLIXIMAB-DYYB
     Dosage: 10 MG/KG, STAT DOSE, THEN ONE DOSE IN 2 WEEKS, THEN EVERY 6 WEEKS
     Route: 042
     Dates: start: 20231114
  9. INFLECTRA [Suspect]
     Active Substance: INFLIXIMAB-DYYB
     Dosage: 10 MG/KG, EVERY 6 WEEKS
     Route: 042
     Dates: start: 20240116
  10. INFLECTRA [Suspect]
     Active Substance: INFLIXIMAB-DYYB
     Dosage: 10 MG/KG, EVERY 6 WEEKS
     Route: 042
     Dates: start: 20240116
  11. INFLECTRA [Suspect]
     Active Substance: INFLIXIMAB-DYYB
     Dosage: 970 MG, (10 MG/KG) WEEK 0 REINDUCTION DOSE, THEN Q 6 WEEKS
     Route: 042
     Dates: start: 20240528
  12. INFLECTRA [Suspect]
     Active Substance: INFLIXIMAB-DYYB
     Dosage: 970 MG, (10 MG/KG) WEEK 0 REINDUCTION DOSE, THEN Q 6 WEEKS
     Route: 042
     Dates: start: 20240528
  13. INFLECTRA [Suspect]
     Active Substance: INFLIXIMAB-DYYB
     Dosage: 970 MG, (10 MG/KG) WEEK 0 REINDUCTION DOSE, THEN Q 6 WEEKS
     Route: 042
     Dates: start: 20240528
  14. INFLECTRA [Suspect]
     Active Substance: INFLIXIMAB-DYYB
     Dosage: 980 MG (10 MG/KG), AFTER 2 WEEKS (WEEK 2 OF REINDUCTION) THEN Q 6 WEEKS
     Route: 042
     Dates: start: 20240611
  15. INFLECTRA [Suspect]
     Active Substance: INFLIXIMAB-DYYB
     Dosage: 970 MG (10 MG/KG), AFTER 3 WEEKS AND 6 DAYS (W 6 REINDUCTION) THEN Q 6 WEEKS
     Route: 042
     Dates: start: 20240708
  16. INFLECTRA [Suspect]
     Active Substance: INFLIXIMAB-DYYB
     Dosage: 970 MG (10 MG/KG), AFTER 3 WEEKS AND 6 DAYS (W 6 REINDUCTION) THEN Q 6 WEEKS
     Route: 042
     Dates: start: 20240708, end: 2024
  17. CALCIUM [Concomitant]
     Active Substance: CALCIUM
     Dosage: 1 DF, DOSAGE INFORMATION NOT AVAILABLE
     Route: 048
  18. CITALOPRAM [Concomitant]
     Active Substance: CITALOPRAM
     Dosage: 20 MG
  19. DICYCLOMINE [Concomitant]
     Active Substance: DICYCLOMINE HYDROCHLORIDE
     Dosage: 10 MG, AS NEEDED
     Route: 048
  20. MORPHINE [Concomitant]
     Active Substance: MORPHINE
     Dosage: 5 MG, AS NEEDED
     Route: 048
  21. PREDNISONE [Concomitant]
     Active Substance: PREDNISONE
     Dosage: 1 DF, DOSAGE INFORMATION NOT AVAILABLE
     Route: 065
     Dates: start: 2020
  22. CHOLECALCIFEROL [Concomitant]
     Active Substance: CHOLECALCIFEROL
     Dosage: 1 DF, DOSAGE INFORMATION NOT AVAILABLE
     Route: 048
  23. ZOPICLONE [Concomitant]
     Active Substance: ZOPICLONE
     Dosage: 7.5 MG

REACTIONS (16)
  - Condition aggravated [Recovering/Resolving]
  - Rash erythematous [Not Recovered/Not Resolved]
  - Discharge [Unknown]
  - Arthralgia [Recovered/Resolved]
  - Acne [Not Recovered/Not Resolved]
  - Therapeutic response shortened [Unknown]
  - Acarodermatitis [Recovered/Resolved]
  - Psoriasis [Recovered/Resolved]
  - Discouragement [Unknown]
  - Staphylococcal skin infection [Recovered/Resolved]
  - Rash [Recovered/Resolved]
  - Pruritus [Not Recovered/Not Resolved]
  - Skin disorder [Unknown]
  - Off label use [Unknown]
  - Off label use [Unknown]
  - Intentional product use issue [Unknown]

NARRATIVE: CASE EVENT DATE: 20231201
